FAERS Safety Report 25322673 (Version 1)
Quarter: 2025Q2

REPORT INFORMATION
  Report Type: Report from Study
  Country: JP (occurrence: JP)
  Receive Date: 20250516
  Receipt Date: 20250516
  Transmission Date: 20250717
  Serious: Yes (Other)
  Sender: ROCHE
  Company Number: JP-ROCHE-10000272684

PATIENT

DRUGS (6)
  1. ATEZOLIZUMAB [Suspect]
     Active Substance: ATEZOLIZUMAB
     Indication: Neoplasm malignant
     Route: 065
  2. IPILIMUMAB [Suspect]
     Active Substance: IPILIMUMAB
     Indication: Neoplasm malignant
     Route: 065
  3. NIVOLUMAB [Suspect]
     Active Substance: NIVOLUMAB
     Indication: Neoplasm malignant
     Route: 065
  4. PEMBROLIZUMAB [Suspect]
     Active Substance: PEMBROLIZUMAB
     Indication: Neoplasm malignant
     Route: 065
  5. DURVALUMAB [Suspect]
     Active Substance: DURVALUMAB
     Indication: Neoplasm malignant
     Route: 065
  6. AVELUMAB [Suspect]
     Active Substance: AVELUMAB
     Indication: Neoplasm malignant
     Route: 065

REACTIONS (22)
  - Myositis [Unknown]
  - Seizure [Unknown]
  - Neuropathy peripheral [Unknown]
  - Asthenia [Unknown]
  - Cerebrovascular accident [Unknown]
  - Cardiac failure [Unknown]
  - Myocardial infarction [Unknown]
  - Myocarditis [Unknown]
  - Thrombosis [Unknown]
  - Pneumonia [Unknown]
  - Pleural effusion [Unknown]
  - Respiratory distress [Unknown]
  - Gastrointestinal perforation [Unknown]
  - Enteritis [Unknown]
  - Hypothalamo-pituitary disorder [Unknown]
  - Adrenal disorder [Unknown]
  - Thyroid disorder [Unknown]
  - Type 1 diabetes mellitus [Unknown]
  - Thrombotic thrombocytopenic purpura [Unknown]
  - Autoimmune anaemia [Unknown]
  - Lymphatic disorder [Unknown]
  - Meningitis [Unknown]
